FAERS Safety Report 11799686 (Version 2)
Quarter: 2015Q4

REPORT INFORMATION
  Report Type: Report from Study
  Country: US (occurrence: US)
  Receive Date: 20151203
  Receipt Date: 20151222
  Transmission Date: 20160305
  Serious: Yes (Hospitalization)
  Sender: FDA-Public Use
  Company Number: US-ACTELION-A-US2015-128063

PATIENT
  Age: 65 Year
  Sex: Female

DRUGS (1)
  1. VELETRI [Suspect]
     Active Substance: EPOPROSTENOL
     Indication: PULMONARY ARTERIAL HYPERTENSION
     Dosage: 49.5 NG/KG, PER MIN
     Route: 042
     Dates: start: 20121120

REACTIONS (3)
  - Staphylococcal infection [Unknown]
  - Abdominal discomfort [Unknown]
  - Clostridium difficile infection [Unknown]
